FAERS Safety Report 11760773 (Version 1)
Quarter: 2015Q4

REPORT INFORMATION
  Report Type: Report from Study
  Country: US (occurrence: US)
  Receive Date: 20151120
  Receipt Date: 20151120
  Transmission Date: 20160304
  Serious: Yes (Other)
  Sender: FDA-Public Use
  Company Number: US-AMGEN-USASP2015083589

PATIENT
  Age: 57 Year
  Sex: Male

DRUGS (3)
  1. HYDROCODONE [Concomitant]
     Active Substance: HYDROCODONE
  2. TRAMADOL. [Concomitant]
     Active Substance: TRAMADOL
  3. NPLATE [Suspect]
     Active Substance: ROMIPLOSTIM
     Indication: PRODUCT USED FOR UNKNOWN INDICATION
     Dosage: UNK
     Route: 065

REACTIONS (7)
  - Intervertebral disc protrusion [Unknown]
  - Arthritis [Unknown]
  - Impaired healing [Unknown]
  - Surgery [Unknown]
  - Platelet count decreased [Unknown]
  - Tooth socket haemorrhage [Unknown]
  - Tooth extraction [Unknown]

NARRATIVE: CASE EVENT DATE: 201503
